FAERS Safety Report 9098218 (Version 1)
Quarter: 2013Q1

REPORT INFORMATION
  Report Type: Report from Study
  Country: FR (occurrence: FR)
  Receive Date: 20130213
  Receipt Date: 20130213
  Transmission Date: 20140127
  Serious: Yes (Hospitalization)
  Sender: FDA-Public Use
  Company Number: PHHO2013FR002386

PATIENT
  Sex: 0

DRUGS (7)
  1. INC424 [Suspect]
     Indication: MYELOFIBROSIS
     Dosage: 25 MG, BID
     Route: 048
     Dates: start: 20091111
  2. DILTIAZEM [Suspect]
     Indication: HYPERTENSION
     Dosage: 300 MG
     Dates: end: 20121208
  3. ENALAPRIL [Concomitant]
     Indication: HYPERTENSION
     Dosage: 20 MG, UNK
  4. NOCTRAN [Concomitant]
     Indication: SLEEP DISORDER
     Dosage: 0.5
     Dates: end: 20121208
  5. EUPRESSYL [Concomitant]
     Dosage: 300 MG
  6. FUROSEMIDE [Concomitant]
     Indication: OEDEMA
     Dosage: 20 MG, UNK
     Dates: start: 20121105
  7. FINASTERIDE [Concomitant]
     Dosage: 5 MG

REACTIONS (1)
  - Intra-abdominal haematoma [Recovered/Resolved]
